FAERS Safety Report 10608416 (Version 1)
Quarter: 2014Q4

REPORT INFORMATION
  Report Type: Spontaneous
  Country: DE (occurrence: DE)
  Receive Date: 20141125
  Receipt Date: 20141125
  Transmission Date: 20150529
  Serious: Yes (Hospitalization)
  Sender: FDA-Public Use
  Company Number: DE-TEVA-523059GER

PATIENT
  Age: 58 Year
  Sex: Female

DRUGS (4)
  1. MONO-EMBOLEX [Concomitant]
     Active Substance: CERTOPARIN SODIUM
     Route: 058
     Dates: start: 20140617
  2. L-THYROXIN [Concomitant]
     Active Substance: LEVOTHYROXINE SODIUM
     Indication: THYROIDECTOMY
     Dosage: 150 MICROGRAM DAILY;
  3. FENTANYL. [Suspect]
     Active Substance: FENTANYL
     Indication: JOINT SURGERY
     Dates: start: 20140616
  4. PROPOFOL. [Suspect]
     Active Substance: PROPOFOL
     Indication: JOINT SURGERY
     Dates: start: 20140616

REACTIONS (3)
  - Jaundice [Unknown]
  - Drug-induced liver injury [Unknown]
  - Transaminases increased [Unknown]

NARRATIVE: CASE EVENT DATE: 20140720
